FAERS Safety Report 11618982 (Version 2)
Quarter: 2015Q4

REPORT INFORMATION
  Report Type: Spontaneous
  Country: JP (occurrence: JP)
  Receive Date: 20151012
  Receipt Date: 20151218
  Transmission Date: 20160304
  Serious: Yes (Other)
  Sender: FDA-Public Use
  Company Number: PHJP2015JP017169

PATIENT
  Age: 39 Year
  Sex: Female
  Weight: 90 kg

DRUGS (1)
  1. EXFORGE [Suspect]
     Active Substance: AMLODIPINE BESYLATE\VALSARTAN
     Indication: GESTATIONAL HYPERTENSION
     Dosage: 1 DF, QD
     Route: 048
     Dates: end: 20150929

REACTIONS (3)
  - Maternal exposure during pregnancy [Unknown]
  - Abdominal distension [Unknown]
  - Premature labour [Unknown]

NARRATIVE: CASE EVENT DATE: 20150928
